FAERS Safety Report 6690298-1 (Version None)
Quarter: 2010Q2

REPORT INFORMATION
  Report Type: 
  Country: None (occurrence: None)
  Receive Date: 20100421
  Receipt Date: 20100318
  Transmission Date: 20101027
  Serious: Yes (Life-Threatening)
  Sender: FDA-Public Use
  Company Number: PHHY2010US24467

PATIENT
  Age: 2 Year
  Sex: Male
  Weight: 13.605 kg

DRUGS (1)
  1. ELIDEL [Suspect]
     Indication: ECZEMA
     Dosage: THIN LAYER DAILY
     Route: 061

REACTIONS (1)
  - KAWASAKI'S DISEASE [None]
